FAERS Safety Report 9172242 (Version 1)
Quarter: 2013Q1

REPORT INFORMATION
  Report Type: Report from Study
  Country: US (occurrence: US)
  Receive Date: 20130319
  Receipt Date: 20130319
  Transmission Date: 20140127
  Serious: Yes (Other)
  Sender: FDA-Public Use
  Company Number: US-009507513-1303USA006580

PATIENT
  Sex: Male
  Weight: 88.89 kg

DRUGS (7)
  1. VICTRELIS [Suspect]
     Dosage: 800 MG, TID
     Route: 048
     Dates: start: 20120320, end: 20121028
  2. PEGASYS [Suspect]
     Indication: CHRONIC HEPATITIS C
     Dosage: 180 MICROGRAM, QW
     Route: 058
     Dates: start: 20120213
  3. PEGASYS [Suspect]
     Dosage: 135 MICROGRAM, ONCE IN 3 WEEKS
     Route: 058
  4. COPEGUS [Suspect]
     Indication: CHRONIC HEPATITIS C
     Dosage: 1200 MG, QD
     Route: 048
     Dates: start: 20120213
  5. NEUPOGEN [Concomitant]
     Dosage: 300 MICROGRAM, FOR 4 WEEKS
  6. QUETIAPINE FUMARATE [Concomitant]
     Dosage: 400 MG, UNK
  7. QUETIAPINE FUMARATE [Concomitant]
     Dosage: 50 MG, UNK

REACTIONS (16)
  - Weight decreased [Recovering/Resolving]
  - Liver disorder [Unknown]
  - Somnolence [Unknown]
  - Hallucination, auditory [Unknown]
  - Paranoia [Unknown]
  - Myalgia [Unknown]
  - Bone pain [Unknown]
  - Weight decreased [Unknown]
  - Decreased appetite [Unknown]
  - Insomnia [Unknown]
  - Fatigue [Unknown]
  - Anaemia [Unknown]
  - Neutrophil count decreased [Unknown]
  - Dry mouth [Unknown]
  - Insomnia [Unknown]
  - Irritability [Unknown]
